FAERS Safety Report 4347772-2 (Version None)
Quarter: 2004Q2

REPORT INFORMATION
  Report Type: 
  Country: None (occurrence: None)
  Receive Date: 20040422
  Receipt Date: 20040409
  Transmission Date: 20050107
  Serious: Yes (Life-Threatening, Hospitalization)
  Sender: FDA-Public Use
  Company Number: 1-11234079

PATIENT
  Age: 18 Year
  Sex: Female
  Weight: 43.2 kg

DRUGS (4)
  1. BUPHENYL [Suspect]
     Indication: CARBAMOYL PHOSPHATE SYNTHETASE DEFICIENCY
     Dosage: 456 MG/KG/DAY
     Dates: start: 20020413, end: 20020513
  2. NA PHENYLACETATE [Suspect]
     Indication: CARBAMOYL PHOSPHATE SYNTHETASE DEFICIENCY
     Dosage: 7.5 G IV OVER 12 HOURS
     Route: 042
     Dates: start: 20020412, end: 20020413
  3. L-CITRULLINE [Concomitant]
  4. NA BENZOATE [Concomitant]

REACTIONS (8)
  - DYSARTHRIA [None]
  - ENCEPHALOPATHY [None]
  - HYPOKALAEMIA [None]
  - LACTIC ACIDOSIS [None]
  - NEUROPATHY [None]
  - PANCREATITIS [None]
  - PANCYTOPENIA [None]
  - TACHYCARDIA [None]
